FAERS Safety Report 20720688 (Version 1)
Quarter: 2022Q2

REPORT INFORMATION
  Report Type: Report from Study
  Country: CA (occurrence: CA)
  Receive Date: 20220418
  Receipt Date: 20220418
  Transmission Date: 20220721
  Serious: Yes (Other)
  Sender: FDA-Public Use
  Company Number: CA-NOVARTISPH-NVSC2022CA089327

PATIENT
  Sex: Male

DRUGS (1)
  1. DEXAMETHASONE [Suspect]
     Active Substance: DEXAMETHASONE
     Indication: Aplastic anaemia
     Dosage: UNK
     Route: 065

REACTIONS (7)
  - Platelet count decreased [Unknown]
  - Epistaxis [Unknown]
  - Oral mucosal blistering [Unknown]
  - Fatigue [Unknown]
  - Dyspepsia [Unknown]
  - Drug ineffective [Unknown]
  - Product use in unapproved indication [Unknown]
